FAERS Safety Report 19507677 (Version 1)
Quarter: 2021Q3

REPORT INFORMATION
  Report Type: Spontaneous
  Country: LB (occurrence: LB)
  Receive Date: 20210708
  Receipt Date: 20210708
  Transmission Date: 20211014
  Serious: Yes (Death, Other)
  Sender: FDA-Public Use
  Company Number: LB-AZURITY PHARMACEUTICALS, INC.-2021AZY00066

PATIENT
  Age: 28 Year
  Sex: Male

DRUGS (12)
  1. DEXAMETHASONE. [Concomitant]
     Active Substance: DEXAMETHASONE
     Dosage: 8 MG, ONCE WEEKLY ALTERNATING DOSES
     Route: 037
  2. METHOTREXATE. [Suspect]
     Active Substance: METHOTREXATE
     Indication: ACUTE LYMPHOCYTIC LEUKAEMIA
     Dosage: ONE DOSE
     Route: 037
  3. METHOTREXATE. [Suspect]
     Active Substance: METHOTREXATE
     Dosage: 12 MG, TWICE WEEKLY FOR 2 DOSES
     Route: 037
  4. METHOTREXATE. [Suspect]
     Active Substance: METHOTREXATE
     Dosage: 12 MG, ONCE WEEKLY ALTERNATING DOSES
     Route: 037
  5. VINCRISTINE [Concomitant]
     Active Substance: VINCRISTINE
     Route: 065
  6. PREDNISONE. [Concomitant]
     Active Substance: PREDNISONE
     Route: 065
  7. L?ASPARAGINASE [Concomitant]
     Active Substance: ASPARAGINASE
     Route: 065
  8. DEXAMETHASONE. [Concomitant]
     Active Substance: DEXAMETHASONE
     Dosage: 8 MG, TWICE WEEKLY FOR TWO DOSES
     Route: 037
  9. CYTARABINE. [Concomitant]
     Active Substance: CYTARABINE
     Dosage: UNK
     Route: 037
  10. CYTARABINE. [Concomitant]
     Active Substance: CYTARABINE
     Dosage: 100 MG, TWIC WEEKLY FOR TWO DOSES
     Route: 037
  11. CYTARABINE. [Concomitant]
     Active Substance: CYTARABINE
     Dosage: 100 MG, ONCE WEEKLY ALTERNATING DOSES
     Route: 037
  12. DAUNORUBICIN [Concomitant]
     Active Substance: DAUNORUBICIN
     Route: 065

REACTIONS (4)
  - Pneumonia [Unknown]
  - Septic shock [Fatal]
  - Myelopathy [Fatal]
  - Bacteraemia [Unknown]
